FAERS Safety Report 9458533 (Version 1)
Quarter: 2013Q3

REPORT INFORMATION
  Report Type: Spontaneous
  Country: US (occurrence: None)
  Receive Date: 20130813
  Receipt Date: 20130813
  Transmission Date: 20140515
  Serious: Yes (Disabling)
  Sender: FDA-Public Use
  Company Number: None

PATIENT
  Age: 15 Year
  Sex: Female

DRUGS (2)
  1. DEPAKOTE [Suspect]
     Indication: LENNOX-GASTAUT SYNDROME
     Dates: start: 200808, end: 200811
  2. NEURONTIN [Suspect]
     Indication: LENNOX-GASTAUT SYNDROME
     Dates: start: 200808, end: 200811

REACTIONS (4)
  - Convulsion [None]
  - Sedation [None]
  - Abasia [None]
  - Catatonia [None]
